FAERS Safety Report 20364871 (Version 1)
Quarter: 2022Q1

REPORT INFORMATION
  Report Type: Spontaneous
  Country: US (occurrence: US)
  Receive Date: 20220122
  Receipt Date: 20220122
  Transmission Date: 20220423
  Serious: No
  Sender: FDA-Public Use
  Company Number: US-HETERO-HET2022US00124

PATIENT

DRUGS (4)
  1. RITONAVIR [Suspect]
     Active Substance: RITONAVIR
     Indication: COVID-19
     Dosage: 100 MILLIGRAM, BID (IN THE MORNINGAND IN THE EVENING).
     Route: 048
     Dates: start: 20220116
  2. DEXAMETHASONE [Suspect]
     Active Substance: DEXAMETHASONE
     Indication: Asthma
     Dosage: 4 MILLIGRAM
     Route: 065
     Dates: start: 20220117
  3. DEXAMETHASONE [Suspect]
     Active Substance: DEXAMETHASONE
     Indication: Dyspnoea
  4. LEVOTHYROXINE SODIUM [Concomitant]
     Active Substance: LEVOTHYROXINE SODIUM
     Indication: Thyroiditis
     Dosage: UNK
     Route: 065

REACTIONS (2)
  - Feeling abnormal [Unknown]
  - Dysgeusia [Not Recovered/Not Resolved]

NARRATIVE: CASE EVENT DATE: 20220101
